FAERS Safety Report 9135357 (Version 1)
Quarter: 2013Q1

REPORT INFORMATION
  Report Type: Spontaneous
  Country: US (occurrence: US)
  Receive Date: 20130304
  Receipt Date: 20130304
  Transmission Date: 20140127
  Serious: No
  Sender: FDA-Public Use
  Company Number: US-ENDO PHARMACEUTICALS INC.-ENDC20110163

PATIENT
  Age: 57 Year
  Sex: Male

DRUGS (4)
  1. ENDOCET [Suspect]
     Indication: PAIN
     Dosage: 30/975 MG
     Route: 048
  2. COUMADIN [Concomitant]
     Indication: THROMBOSIS
     Route: 048
  3. ACETYLSALICYLIC ACID [Concomitant]
     Dosage: UNKNOWN
     Route: 048
  4. TOPIRAMATE [Concomitant]
     Indication: BACK PAIN
     Dosage: UNKNOWN
     Route: 048

REACTIONS (3)
  - Blood urine present [Recovered/Resolved]
  - Nausea [Recovered/Resolved]
  - Lethargy [Recovered/Resolved]
